FAERS Safety Report 7801944-0 (Version None)
Quarter: 2011Q4

REPORT INFORMATION
  Report Type: 
  Country: None (occurrence: None)
  Receive Date: 20111007
  Receipt Date: 20111007
  Transmission Date: 20120403
  Serious: Yes (Hospitalization)
  Sender: FDA-Public Use
  Company Number: None

PATIENT
  Age: 71 Year
  Sex: Female
  Weight: 63.502 kg

DRUGS (1)
  1. ENOXAPARIN [Suspect]
     Indication: AORTIC VALVE REPLACEMENT
     Dosage: 80 MG
     Route: 058
     Dates: start: 20110929, end: 20110929

REACTIONS (1)
  - HAEMATOMA [None]
